FAERS Safety Report 6149583-4 (Version None)
Quarter: 2009Q2

REPORT INFORMATION
  Report Type: 
  Country: None (occurrence: None)
  Receive Date: 20090409
  Receipt Date: 20090106
  Transmission Date: 20091009
  Serious: Yes (Life-Threatening, Hospitalization)
  Sender: FDA-Public Use
  Company Number: MX-B.I. PHARMACEUTICALS,INC./RIDGEFIELD-2009-DE-02938GL

PATIENT
  Sex: Female

DRUGS (4)
  1. MICARDIS HCT [Suspect]
     Indication: HYPERTENSION
     Dosage: 1ANZ
     Route: 048
     Dates: start: 19980101
  2. FLUARIX FLU NG-006 [Suspect]
     Route: 030
     Dates: start: 20081101, end: 20081101
  3. FLU NG [Suspect]
     Route: 030
     Dates: start: 20081101, end: 20081101
  4. PRAVASTATIN [Concomitant]

REACTIONS (1)
  - DIVERTICULAR PERFORATION [None]
